FAERS Safety Report 6707792-7 (Version None)
Quarter: 2010Q2

REPORT INFORMATION
  Report Type: 
  Country: None (occurrence: None)
  Receive Date: 20100503
  Receipt Date: 20091117
  Transmission Date: 20101027
  Serious: No
  Sender: FDA-Public Use
  Company Number: US-ASTRAZENECA-2009SE27151

PATIENT
  Sex: Male
  Weight: 86.6 kg

DRUGS (8)
  1. NEXIUM [Suspect]
     Indication: EROSIVE OESOPHAGITIS
     Route: 048
     Dates: start: 20091103
  2. SINGULAIR [Concomitant]
  3. SEROQUEL [Concomitant]
  4. ADVAIR DISKUS 100/50 [Concomitant]
  5. XOPENEX [Concomitant]
  6. MELATONIN [Concomitant]
  7. NEURONTIN [Concomitant]
  8. SPIRIVA [Concomitant]

REACTIONS (3)
  - DRUG DOSE OMISSION [None]
  - EROSIVE OESOPHAGITIS [None]
  - WEIGHT INCREASED [None]
